FAERS Safety Report 6907875-2 (Version None)
Quarter: 2010Q3

REPORT INFORMATION
  Report Type: 
  Country: None (occurrence: None)
  Receive Date: 20100716
  Receipt Date: 20100420
  Transmission Date: 20110219
  Serious: Yes (Hospitalization)
  Sender: FDA-Public Use
  Company Number: 2010050061

PATIENT
  Sex: Male

DRUGS (4)
  1. CELEBREX [Suspect]
     Indication: PAIN
     Dosage: 200 MG, 2X/DAY, ORAL
     Route: 048
     Dates: start: 20080101
  2. ATENOLOL [Concomitant]
  3. AMBIEN [Concomitant]
  4. ACETAMINOPHEN [Concomitant]

REACTIONS (3)
  - HYPERSENSITIVITY [None]
  - NAUSEA [None]
  - SWELLING FACE [None]
